FAERS Safety Report 24236899 (Version 1)
Quarter: 2024Q3

REPORT INFORMATION
  Report Type: Spontaneous
  Country: ES (occurrence: ES)
  Receive Date: 20240822
  Receipt Date: 20240822
  Transmission Date: 20241017
  Serious: Yes (Death, Hospitalization)
  Sender: STRIDES
  Company Number: ES-STRIDES ARCOLAB LIMITED-2024SP010449

PATIENT
  Age: 86 Year
  Sex: Male

DRUGS (1)
  1. METHOTREXATE [Suspect]
     Active Substance: METHOTREXATE
     Indication: Dermatitis atopic
     Dosage: 10 MILLIGRAM, QD (TOOK DAILY TREATMENT FOR FIVE CONSECUTIVE DAYS INSTEAD OF WEEKLY)
     Route: 048

REACTIONS (8)
  - Multiple organ dysfunction syndrome [Fatal]
  - Accidental overdose [Fatal]
  - Inappropriate schedule of product administration [Fatal]
  - Pancytopenia [Fatal]
  - Acute kidney injury [Fatal]
  - Eczema impetiginous [Fatal]
  - Toxicity to various agents [Fatal]
  - Off label use [Unknown]
